FAERS Safety Report 14970558 (Version 1)
Quarter: 2018Q2

REPORT INFORMATION
  Report Type: Spontaneous
  Country: CA (occurrence: CA)
  Receive Date: 20180604
  Receipt Date: 20180604
  Transmission Date: 20180711
  Serious: Yes (Other)
  Sender: FDA-Public Use
  Company Number: CA-PFIZER INC-2018211009

PATIENT
  Sex: Female

DRUGS (1)
  1. DEPO-MEDROL [Suspect]
     Active Substance: METHYLPREDNISOLONE ACETATE
     Dosage: INJECTION 3 TIMES IN LUNGS AND KIDNEYS

REACTIONS (10)
  - Dysstasia [Unknown]
  - Fatigue [Unknown]
  - Eye disorder [Unknown]
  - Hypersensitivity [Unknown]
  - Migraine [Unknown]
  - Decreased appetite [Unknown]
  - Chest discomfort [Unknown]
  - Product use issue [Unknown]
  - Renal impairment [Unknown]
  - Dyspnoea [Unknown]
